FAERS Safety Report 6993276-8 (Version None)
Quarter: 2010Q3

REPORT INFORMATION
  Report Type: 
  Country: None (occurrence: None)
  Receive Date: 20100917
  Receipt Date: 20100702
  Transmission Date: 20110219
  Serious: No
  Sender: FDA-Public Use
  Company Number: US-ASTRAZENECA-2010SE30999

PATIENT
  Age: 424 Month
  Sex: Male
  Weight: 70.3 kg

DRUGS (4)
  1. SEROQUEL [Suspect]
     Indication: INSOMNIA
     Route: 048
     Dates: start: 20090701, end: 20100101
  2. PAROXETINE HCL [Concomitant]
  3. NIRTAZABINE [Concomitant]
  4. DOXEPIN HCL [Concomitant]

REACTIONS (3)
  - ANXIETY [None]
  - BLOOD GLUCOSE INCREASED [None]
  - PANIC ATTACK [None]
